FAERS Safety Report 20380167 (Version 1)
Quarter: 2022Q1

REPORT INFORMATION
  Report Type: Spontaneous
  Country: US (occurrence: US)
  Receive Date: 20220126
  Receipt Date: 20220126
  Transmission Date: 20220423
  Serious: Yes (Other)
  Sender: FDA-Public Use
  Company Number: US-drreddys-SPO/USA/22/0145996

PATIENT
  Age: 13 Year
  Sex: Female

DRUGS (2)
  1. ACCUTANE [Suspect]
     Active Substance: ISOTRETINOIN
     Indication: Product used for unknown indication
     Dosage: RMA ISSUE DATE: 15/SEPTEMBER/2021 02:31:21 PM, 26/OCTOBER/2021 01:21:13 PM, 06/DECEMBER/2021 12:38:2
  2. ACCUTANE [Suspect]
     Active Substance: ISOTRETINOIN
     Dosage: RMA ISSUE DATE :13/AUGUST/2021 12:00:47 PM, 02/JULY/2021 01:29:31 PM AND 27/MAY/2021 11:46:33 AM

REACTIONS (3)
  - Intentional self-injury [Unknown]
  - Anxiety [Unknown]
  - Depression [Unknown]
